FAERS Safety Report 14820120 (Version 1)
Quarter: 2018Q2

REPORT INFORMATION
  Report Type: Spontaneous
  Country: US (occurrence: US)
  Receive Date: 20180427
  Receipt Date: 20180427
  Transmission Date: 20180711
  Serious: Yes (Congenital Anomaly)
  Sender: FDA-Public Use
  Company Number: US-DUCHESNAY INC.-2046732

PATIENT
  Sex: Male

DRUGS (3)
  1. DICLEGIS [Suspect]
     Active Substance: DOXYLAMINE SUCCINATE\PYRIDOXINE HYDROCHLORIDE
     Indication: NAUSEA
     Route: 064
     Dates: start: 201702
  2. DICLEGIS [Suspect]
     Active Substance: DOXYLAMINE SUCCINATE\PYRIDOXINE HYDROCHLORIDE
     Indication: VOMITING IN PREGNANCY
     Route: 064
     Dates: start: 201702
  3. PRENATAL VITAMINS [Concomitant]
     Active Substance: VITAMINS

REACTIONS (2)
  - Pectus excavatum [Recovering/Resolving]
  - Penoscrotal fusion [Recovering/Resolving]

NARRATIVE: CASE EVENT DATE: 201709
